FAERS Safety Report 19934265 (Version 1)
Quarter: 2021Q4

REPORT INFORMATION
  Report Type: Spontaneous
  Country: US (occurrence: US)
  Receive Date: 20211008
  Receipt Date: 20211008
  Transmission Date: 20220304
  Serious: Yes (Hospitalization)
  Sender: FDA-Public Use
  Company Number: US-SLATE RUN PHARMACEUTICALS-21US000709

PATIENT

DRUGS (7)
  1. AZITHROMYCIN [Suspect]
     Active Substance: AZITHROMYCIN
     Indication: Maternal exposure timing unspecified
     Dosage: UNK
     Route: 015
  2. OXYGEN [Concomitant]
     Active Substance: OXYGEN
     Indication: Maternal exposure timing unspecified
     Route: 015
  3. REMDESIVIR [Concomitant]
     Active Substance: REMDESIVIR
     Indication: Maternal exposure timing unspecified
     Route: 015
  4. TOCILIZUMAB [Concomitant]
     Active Substance: TOCILIZUMAB
     Indication: Maternal exposure timing unspecified
     Route: 015
  5. DEXAMETHASONE [Concomitant]
     Active Substance: DEXAMETHASONE
     Indication: Maternal exposure timing unspecified
     Route: 015
  6. HEPARIN [Concomitant]
     Active Substance: HEPARIN SODIUM
     Indication: Maternal exposure timing unspecified
     Route: 015
  7. CEFTRIAXONE [Concomitant]
     Active Substance: CEFTRIAXONE
     Indication: Maternal exposure timing unspecified
     Route: 015

REACTIONS (2)
  - Premature baby [Unknown]
  - Foetal exposure during pregnancy [Unknown]
